FAERS Safety Report 16376657 (Version 1)
Quarter: 2019Q2

REPORT INFORMATION
  Report Type: Spontaneous
  Country: US (occurrence: US)
  Receive Date: 20190531
  Receipt Date: 20190531
  Transmission Date: 20190711
  Serious: Yes (Hospitalization, Other)
  Sender: FDA-Public Use
  Company Number: US-BRACCO-2019US02518

PATIENT
  Age: 72 Year
  Sex: Female

DRUGS (1)
  1. LIQUID POLIBAR PLUS [Suspect]
     Active Substance: BARIUM SULFATE
     Indication: BARIUM ENEMA
     Route: 054

REACTIONS (4)
  - Incorrect route of product administration [Recovered/Resolved]
  - Extravasation [Recovered/Resolved]
  - Vaginal haemorrhage [Recovered/Resolved]
  - Vulvovaginal pain [Recovered/Resolved]
